FAERS Safety Report 8169960-X (Version None)
Quarter: 2012Q1

REPORT INFORMATION
  Report Type: 
  Country: None (occurrence: None)
  Receive Date: 20120228
  Receipt Date: 20120228
  Transmission Date: 20120608
  Serious: Yes (Other)
  Sender: FDA-Public Use
  Company Number: None

PATIENT
  Sex: Male
  Weight: 89 kg

DRUGS (2)
  1. ALBUTEROL [Suspect]
     Dosage: 15 MG
     Route: 055
  2. IPRATROPIUM BROMIDE [Concomitant]
     Dosage: 1.5 MG
     Route: 055

REACTIONS (3)
  - VENTRICULAR TACHYCARDIA [None]
  - CHEST DISCOMFORT [None]
  - BLOOD PRESSURE INCREASED [None]
